FAERS Safety Report 15260343 (Version 2)
Quarter: 2018Q4

REPORT INFORMATION
  Report Type: Spontaneous
  Country: FR (occurrence: FR)
  Receive Date: 20180809
  Receipt Date: 20180815
  Transmission Date: 20190204
  Serious: Yes (Hospitalization)
  Sender: FDA-Public Use
  Company Number: FR-TAIHO ONCOLOGY  INC-IM-2018-00027

PATIENT
  Age: 65 Year
  Sex: Female

DRUGS (1)
  1. LONSURF [Suspect]
     Active Substance: TIPIRACIL HYDROCHLORIDE\TRIFLURIDINE
     Indication: COLORECTAL CANCER METASTATIC
     Dosage: 50 (UNK MG/M2) BID, ON DAY 1, 8 AND 15 OF EACH 28 DAYS CYCLE
     Route: 048
     Dates: start: 20180413, end: 20180618

REACTIONS (1)
  - Necrotising oesophagitis [Not Recovered/Not Resolved]

NARRATIVE: CASE EVENT DATE: 201806
